FAERS Safety Report 13231065 (Version 1)
Quarter: 2017Q1

REPORT INFORMATION
  Report Type: Spontaneous
  Country: US (occurrence: US)
  Receive Date: 20170214
  Receipt Date: 20170214
  Transmission Date: 20170428
  Serious: No
  Sender: FDA-Public Use
  Company Number: US-GLAXOSMITHKLINE-US2017017564

PATIENT
  Age: 35 Year
  Sex: Female

DRUGS (2)
  1. ALLI [Suspect]
     Active Substance: ORLISTAT
     Indication: WEIGHT LOSS DIET
     Dosage: UNK
     Dates: start: 20170205
  2. BENEFIBER [Suspect]
     Active Substance: STARCH, WHEAT
     Indication: SUPPLEMENTATION THERAPY
     Dosage: UNK
     Dates: start: 20170205

REACTIONS (3)
  - Treatment noncompliance [Unknown]
  - Drug ineffective [Unknown]
  - Therapy non-responder [Unknown]

NARRATIVE: CASE EVENT DATE: 20170205
